FAERS Safety Report 9342545 (Version 1)
Quarter: 2013Q2

REPORT INFORMATION
  Report Type: Report from Study
  Country: DE (occurrence: DE)
  Receive Date: 20130611
  Receipt Date: 20130611
  Transmission Date: 20140414
  Serious: Yes (Hospitalization)
  Sender: FDA-Public Use
  Company Number: DE-TEVA-411195ISR

PATIENT
  Age: 71 Year
  Sex: Female

DRUGS (3)
  1. CARBOPLATIN [Suspect]
     Indication: OVARIAN CANCER
     Route: 042
     Dates: start: 20121024
  2. PACLITAXEL [Suspect]
     Indication: OVARIAN CANCER
     Route: 042
     Dates: start: 20121024
  3. BEVACIZUMAB [Suspect]
     Indication: OVARIAN CANCER
     Dosage: 825 MILLIGRAM DAILY; INFUSION, SOLUTION, LAST DOSE PRIOR TO SAE: 08-MAY-2013
     Route: 042
     Dates: start: 20121114

REACTIONS (3)
  - Condition aggravated [Not Recovered/Not Resolved]
  - Asthenia [Not Recovered/Not Resolved]
  - Pyrexia [Recovered/Resolved]
